FAERS Safety Report 6508655-2 (Version None)
Quarter: 2009Q4

REPORT INFORMATION
  Report Type: 
  Country: None (occurrence: None)
  Receive Date: 20091221
  Receipt Date: 20081230
  Transmission Date: 20100525
  Serious: No
  Sender: FDA-Public Use
  Company Number: US-ASTRAZENECA-2008UW28954

PATIENT
  Age: 72 Year
  Sex: Female
  Weight: 55.3 kg

DRUGS (6)
  1. CRESTOR [Suspect]
     Indication: HYPERCHOLESTEROLAEMIA
     Route: 048
  2. GEMFIBROZIL [Suspect]
     Route: 048
  3. FLOMAX [Concomitant]
  4. ISOSORB [Concomitant]
  5. CARBENDOL [Concomitant]
  6. ASPIRIN [Concomitant]

REACTIONS (2)
  - ASTHENIA [None]
  - PAIN [None]
